FAERS Safety Report 15311211 (Version 1)
Quarter: 2018Q3

REPORT INFORMATION
  Report Type: Spontaneous
  Country: US (occurrence: US)
  Receive Date: 20180814
  Receipt Date: 20180814
  Transmission Date: 20181010
  Serious: Yes (Other)
  Sender: FDA-Public Use
  Company Number: None

PATIENT
  Age: 36 Year
  Sex: Female
  Weight: 85.37 kg

DRUGS (1)
  1. QUETIAPINE 25MG [Suspect]
     Active Substance: QUETIAPINE
     Indication: BIPOLAR DISORDER
     Dosage: 25MG?50MG 1?2QHS ORAL
     Route: 048
     Dates: start: 201804, end: 201807

REACTIONS (1)
  - Akathisia [None]

NARRATIVE: CASE EVENT DATE: 20180401
